FAERS Safety Report 25995842 (Version 1)
Quarter: 2025Q4

REPORT INFORMATION
  Report Type: Spontaneous
  Country: BR (occurrence: BR)
  Receive Date: 20251104
  Receipt Date: 20251104
  Transmission Date: 20260117
  Serious: Yes (Other)
  Sender: ROCHE
  Company Number: BR-ROCHE-10000421896

PATIENT
  Age: 98 Year
  Sex: Female

DRUGS (1)
  1. PHESGO [Suspect]
     Active Substance: HYALURONIDASE-ZZXF\PERTUZUMAB\TRASTUZUMAB
     Indication: Breast cancer
     Dosage: 8ML DOSES FOR APPROXIMATELY 4 CYCLES, AFTER 9ML, AND AT THE TIME OF THE REPORT SHE IS ON THE FULL DO
     Route: 058
     Dates: start: 20240710

REACTIONS (2)
  - Invasive breast carcinoma [Unknown]
  - Lymphadenopathy [Unknown]

NARRATIVE: CASE EVENT DATE: 20240716
